FAERS Safety Report 4586985-1 (Version None)
Quarter: 2005Q1

REPORT INFORMATION
  Report Type: 
  Country: None (occurrence: None)
  Receive Date: 20050218
  Receipt Date: 20050211
  Transmission Date: 20050727
  Serious: No
  Sender: FDA-Public Use
  Company Number: US-JNJFOC-20050201731

PATIENT
  Sex: Female

DRUGS (6)
  1. DURAGESIC-100 [Suspect]
     Route: 062
  2. DURAGESIC [Suspect]
     Route: 062
  3. MORPHINE [Concomitant]
     Indication: PAIN
     Route: 049
  4. LORCET-HD [Concomitant]
     Route: 049
  5. LORCET-HD [Concomitant]
     Indication: PAIN
     Route: 049
  6. TYLENOL (CAPLET) [Concomitant]

REACTIONS (3)
  - HYPERSOMNIA [None]
  - LETHARGY [None]
  - OFF LABEL USE [None]
